FAERS Safety Report 11037507 (Version 1)
Quarter: 2015Q2

REPORT INFORMATION
  Report Type: Spontaneous
  Country: US (occurrence: None)
  Receive Date: 20150415
  Receipt Date: 20150415
  Transmission Date: 20150821
  Serious: Yes (Other)
  Sender: FDA-Public Use
  Company Number: None

PATIENT
  Age: 36 Year
  Sex: Male
  Weight: 163.3 kg

DRUGS (8)
  1. OTHERS [Concomitant]
  2. LOSARTAN [Concomitant]
     Active Substance: LOSARTAN
  3. CETRIZINE [Concomitant]
     Active Substance: CETIRIZINE HYDROCHLORIDE
  4. MULTI VITAMINS [Concomitant]
  5. CARVEDIOL [Suspect]
     Active Substance: CARVEDILOL
     Indication: BLOOD PRESSURE INCREASED
     Dosage: 5 YEARS OR MORE?2 TWICE DAILY
     Route: 048
  6. MONTELUKAST [Concomitant]
     Active Substance: MONTELUKAST SODIUM
  7. CPAP BIPAP MACHINE [Concomitant]
  8. AMLODAPYN BESYLATE [Concomitant]

REACTIONS (2)
  - Back pain [None]
  - Pain [None]

NARRATIVE: CASE EVENT DATE: 20150101
